FAERS Safety Report 5129573-0 (Version None)
Quarter: 2006Q4

REPORT INFORMATION
  Report Type: 
  Country: None (occurrence: None)
  Receive Date: 20061018
  Receipt Date: 20061005
  Transmission Date: 20070319
  Serious: Yes (Hospitalization)
  Sender: FDA-Public Use
  Company Number: FR-JNJFOC-20061001703

PATIENT
  Sex: Female

DRUGS (2)
  1. EPITOMAX [Suspect]
     Indication: EPILEPSY
     Route: 048
  2. DEPAKENE [Suspect]
     Indication: EPILEPSY
     Route: 048

REACTIONS (3)
  - DRUG INEFFECTIVE [None]
  - DRUG LEVEL DECREASED [None]
  - EPILEPSY [None]
